APPROVED DRUG PRODUCT: DEXMETHYLPHENIDATE HYDROCHLORIDE
Active Ingredient: DEXMETHYLPHENIDATE HYDROCHLORIDE
Strength: 25MG
Dosage Form/Route: CAPSULE, EXTENDED RELEASE;ORAL
Application: A203614 | Product #001 | TE Code: AB
Applicant: IMPAX LABORATORIES INC
Approved: Jul 5, 2017 | RLD: No | RS: No | Type: RX